FAERS Safety Report 7541026-9 (Version None)
Quarter: 2011Q2

REPORT INFORMATION
  Report Type: 
  Country: None (occurrence: None)
  Receive Date: 20110610
  Receipt Date: 20100609
  Transmission Date: 20111010
  Serious: No
  Sender: FDA-Public Use
  Company Number: A0864035A

PATIENT
  Age: 56 Year
  Sex: Female

DRUGS (4)
  1. ALTABAX [Suspect]
     Indication: INFECTION PROPHYLAXIS
     Dosage: 1APP TWICE PER DAY
     Route: 061
     Dates: start: 20100301, end: 20100401
  2. VITAMIN TAB [Concomitant]
  3. MINERAL TAB [Concomitant]
  4. AMOXICILLIN [Concomitant]

REACTIONS (5)
  - APPLICATION SITE ERYTHEMA [None]
  - DERMATITIS CONTACT [None]
  - APPLICATION SITE PAIN [None]
  - APPLICATION SITE PRURITUS [None]
  - RASH VESICULAR [None]
